FAERS Safety Report 7461071-1 (Version None)
Quarter: 2011Q2

REPORT INFORMATION
  Report Type: 
  Country: None (occurrence: None)
  Receive Date: 20110505
  Receipt Date: 20110406
  Transmission Date: 20111010
  Serious: Yes (Hospitalization)
  Sender: FDA-Public Use
  Company Number: US-BAXTER-2011BH014117

PATIENT
  Age: 16 Year
  Sex: Male

DRUGS (1)
  1. FACTOR VIII, UNSPECIFIED [Suspect]
     Indication: HAEMOPHILIA
     Route: 042

REACTIONS (3)
  - GAIT DISTURBANCE [None]
  - CENTRAL VENOUS CATHETERISATION [None]
  - SYNOVECTOMY [None]
